FAERS Safety Report 23270851 (Version 5)
Quarter: 2025Q2

REPORT INFORMATION
  Report Type: Report from Study
  Country: US (occurrence: US)
  Receive Date: 20231207
  Receipt Date: 20250507
  Transmission Date: 20250716
  Serious: Yes (Hospitalization)
  Sender: TAKEDA
  Company Number: US-TAKEDA-2023TUS117799

PATIENT
  Sex: Male
  Weight: 133 kg

DRUGS (20)
  1. HUMAN IMMUNOGLOBULIN G [Suspect]
     Active Substance: HUMAN IMMUNOGLOBULIN G
     Indication: Chronic inflammatory demyelinating polyradiculoneuropathy
     Dosage: 100 GRAM, Q4WEEKS
     Dates: start: 20230313
  2. HUMAN IMMUNOGLOBULIN G [Suspect]
     Active Substance: HUMAN IMMUNOGLOBULIN G
  3. ACETAMINOPHEN [Concomitant]
     Active Substance: ACETAMINOPHEN
  4. EPINEPHRINE [Concomitant]
     Active Substance: EPINEPHRINE
  5. NIFEDIPINE [Concomitant]
     Active Substance: NIFEDIPINE
  6. MINERALS\VITAMINS [Concomitant]
     Active Substance: MINERALS\VITAMINS
  7. TAMSULOSIN HYDROCHLORIDE [Concomitant]
     Active Substance: TAMSULOSIN HYDROCHLORIDE
  8. IRBESARTAN [Concomitant]
     Active Substance: IRBESARTAN
  9. SODIUM CHLORIDE [Concomitant]
     Active Substance: SODIUM CHLORIDE
  10. ELIQUIS [Concomitant]
     Active Substance: APIXABAN
  11. ATORVASTATIN CALCIUM [Concomitant]
     Active Substance: ATORVASTATIN CALCIUM
  12. GABAPENTIN [Concomitant]
     Active Substance: GABAPENTIN
  13. Coq [Concomitant]
  14. FLONASE ALLERGY RELIEF [Concomitant]
     Active Substance: FLUTICASONE PROPIONATE
  15. HEPARIN [Concomitant]
     Active Substance: HEPARIN SODIUM
  16. LIDOCAINE [Concomitant]
     Active Substance: LIDOCAINE
  17. ASPIRIN [Concomitant]
     Active Substance: ASPIRIN
  18. HYDROCHLOROTHIAZIDE [Concomitant]
     Active Substance: HYDROCHLOROTHIAZIDE
  19. AMIODARONE HYDROCHLORIDE [Concomitant]
     Active Substance: AMIODARONE HYDROCHLORIDE
  20. DIPHENHYDRAMINE HYDROCHLORIDE [Concomitant]
     Active Substance: DIPHENHYDRAMINE HYDROCHLORIDE

REACTIONS (5)
  - Exposure to toxic agent [Unknown]
  - Poor venous access [Unknown]
  - Inappropriate schedule of product administration [Unknown]
  - Infusion site extravasation [Unknown]
  - Infusion site erythema [Unknown]
